FAERS Safety Report 23827313 (Version 1)
Quarter: 2024Q2

REPORT INFORMATION
  Report Type: Spontaneous
  Country: US (occurrence: US)
  Receive Date: 20240507
  Receipt Date: 20240507
  Transmission Date: 20240715
  Serious: Yes (Hospitalization, Other)
  Sender: FDA-Public Use
  Company Number: US-ANIPHARMA-2024-US-025119

PATIENT
  Age: 80 Year
  Sex: Male

DRUGS (2)
  1. CARBIDOPA\LEVODOPA [Suspect]
     Active Substance: CARBIDOPA\LEVODOPA
     Indication: Parkinson^s disease
     Dosage: 25 MG AND 250 MG EVERY 6 HOURS
  2. TORSEMIDE [Suspect]
     Active Substance: TORSEMIDE
     Indication: Peripheral venous disease

REACTIONS (2)
  - Hyperventilation [Recovered/Resolved]
  - Alkalosis [Recovered/Resolved]
